FAERS Safety Report 16861327 (Version 5)
Quarter: 2020Q1

REPORT INFORMATION
  Report Type: Spontaneous
  Country: US (occurrence: US)
  Receive Date: 20190927
  Receipt Date: 20200121
  Transmission Date: 20200409
  Serious: No
  Sender: FDA-Public Use
  Company Number: US-PFIZER INC-2019418800

PATIENT
  Age: 60 Year
  Sex: Female
  Weight: 47.62 kg

DRUGS (2)
  1. DEPO-ESTRADIOL [Suspect]
     Active Substance: ESTRADIOL CYPIONATE
     Dosage: 2 ML, UNK (EVERY 10 DAYS)
  2. DEPO-ESTRADIOL [Suspect]
     Active Substance: ESTRADIOL CYPIONATE
     Indication: HORMONE REPLACEMENT THERAPY
     Dosage: 2 ML IN 4 - 10 DAYS
     Route: 030

REACTIONS (3)
  - Nervousness [Unknown]
  - Intentional product misuse [Unknown]
  - Off label use [Unknown]
